FAERS Safety Report 6353768-1 (Version None)
Quarter: 2009Q3

REPORT INFORMATION
  Report Type: 
  Country: None (occurrence: None)
  Receive Date: 20090912
  Receipt Date: 20090622
  Transmission Date: 20100115
  Serious: No
  Sender: FDA-Public Use
  Company Number: US-ABBOTT-08P-163-0465396-00

PATIENT
  Sex: Female
  Weight: 104.42 kg

DRUGS (2)
  1. HUMIRA [Suspect]
     Indication: ARTHRITIS
     Route: 050
     Dates: start: 20080401, end: 20080601
  2. HUMIRA [Suspect]
     Indication: COLITIS ULCERATIVE
     Route: 050
     Dates: start: 20080601

REACTIONS (5)
  - COLITIS ULCERATIVE [None]
  - DRUG DELIVERY SYSTEM MALFUNCTION [None]
  - INCORRECT DOSE ADMINISTERED [None]
  - INJECTION SITE HAEMORRHAGE [None]
  - INJECTION SITE PAIN [None]
